FAERS Safety Report 6443892-7 (Version None)
Quarter: 2009Q4

REPORT INFORMATION
  Report Type: 
  Country: None (occurrence: None)
  Receive Date: 20091117
  Receipt Date: 20090715
  Transmission Date: 20100525
  Serious: Yes (Hospitalization)
  Sender: FDA-Public Use
  Company Number: JP-ABBOTT-09P-087-0608654-00

PATIENT
  Sex: Male

DRUGS (15)
  1. RITONAVIR SOFT GELATIN CAPSULES [Suspect]
     Indication: HIV INFECTION
     Route: 048
     Dates: start: 19991120, end: 20031202
  2. RITONAVIR SOFT GELATIN CAPSULES [Suspect]
     Route: 048
     Dates: start: 20040615, end: 20080604
  3. RITONAVIR SOFT GELATIN CAPSULES [Suspect]
     Route: 048
     Dates: start: 20080613
  4. LAMIVUDINE [Concomitant]
     Indication: HIV INFECTION
     Route: 048
     Dates: start: 19970417, end: 19970514
  5. LAMIVUDINE [Concomitant]
     Route: 048
     Dates: start: 19971002, end: 19991031
  6. LAMIVUDINE [Concomitant]
     Route: 048
     Dates: start: 19991101, end: 20030331
  7. LAMIVUDINE [Concomitant]
     Route: 048
     Dates: start: 20030401, end: 20031203
  8. LAMIVUDINE [Concomitant]
     Route: 048
     Dates: start: 20040420, end: 20080604
  9. LAMIVUDINE [Concomitant]
     Route: 048
     Dates: start: 20080613
  10. RISPERIDONE [Concomitant]
     Indication: DRUG USE FOR UNKNOWN INDICATION
  11. ABACAVIR SULFATE [Concomitant]
     Indication: HIV INFECTION
     Route: 048
     Dates: start: 20040420, end: 20080604
  12. ABACAVIR SULFATE [Concomitant]
     Route: 048
     Dates: start: 20080613
  13. ATAZANAVIR [Concomitant]
     Indication: HIV INFECTION
     Route: 048
     Dates: start: 20040420, end: 20040614
  14. ATAZANAVIR [Concomitant]
     Route: 048
     Dates: start: 20040615, end: 20080604
  15. FOSAMPRENAVIR [Concomitant]
     Indication: HIV INFECTION
     Route: 048
     Dates: start: 20080613

REACTIONS (2)
  - CALCULUS URINARY [None]
  - RENAL FAILURE ACUTE [None]
